FAERS Safety Report 5576035-2 (Version None)
Quarter: 2007Q4

REPORT INFORMATION
  Report Type: 
  Country: None (occurrence: None)
  Receive Date: 20071228
  Receipt Date: 20071218
  Transmission Date: 20080405
  Serious: No
  Sender: FDA-Public Use
  Company Number: A0689220A

PATIENT
  Age: 86 Year
  Sex: Female

DRUGS (10)
  1. ADVAIR DISKUS 100/50 [Suspect]
     Indication: ASTHMA
     Dosage: 1PUFF TWICE PER DAY
     Route: 055
  2. TOPROL-XL [Concomitant]
  3. PROVENTIL [Concomitant]
  4. XALATAN [Concomitant]
  5. RESTASIS [Concomitant]
  6. LEVOXYL [Concomitant]
  7. LOTREL [Concomitant]
  8. LIPITOR [Concomitant]
  9. HYDROCHLOROTHIAZIDE [Concomitant]
  10. DIABETES MEDICATION [Concomitant]

REACTIONS (2)
  - DIZZINESS [None]
  - PHARMACEUTICAL PRODUCT COMPLAINT [None]
